FAERS Safety Report 23696215 (Version 1)
Quarter: 2024Q2

REPORT INFORMATION
  Report Type: Spontaneous
  Country: JP (occurrence: JP)
  Receive Date: 20240402
  Receipt Date: 20240402
  Transmission Date: 20240716
  Serious: Yes (Other)
  Sender: FDA-Public Use
  Company Number: JP-ALKEM LABORATORIES LIMITED-JP-ALKEM-2023-15963

PATIENT
  Age: 20 Year
  Sex: Female

DRUGS (8)
  1. LAMOTRIGINE [Interacting]
     Active Substance: LAMOTRIGINE
     Indication: Bipolar disorder
     Dosage: 25 MG/DAY
     Route: 065
  2. LAMOTRIGINE [Interacting]
     Active Substance: LAMOTRIGINE
     Dosage: 50 MG/DAY (DAY 18)
     Route: 065
  3. LAMOTRIGINE [Interacting]
     Active Substance: LAMOTRIGINE
     Dosage: 100 MILLIGRAM (TITRATING DOSE)
     Route: 065
  4. LURASIDONE [Interacting]
     Active Substance: LURASIDONE
     Indication: Bipolar disorder
     Dosage: 40 MG/DAY
     Route: 065
  5. QUETIAPINE FUMARATE [Interacting]
     Active Substance: QUETIAPINE FUMARATE
     Indication: Bipolar disorder
     Dosage: 25 MILLIGRAM, HS (BED TIME)
     Route: 065
  6. PFIZER-BIONTECH COVID-19 VACCINE [Interacting]
     Active Substance: TOZINAMERAN
     Indication: Product used for unknown indication
     Dosage: UNK
     Route: 065
  7. VALPROATE [Interacting]
     Active Substance: VALPROIC ACID
     Indication: Bipolar disorder
     Dosage: 800 MG/DAY
     Route: 065
  8. VALPROATE [Interacting]
     Active Substance: VALPROIC ACID
     Dosage: 25 MILLIGRAM, QD
     Route: 065

REACTIONS (2)
  - Leukopenia [Recovered/Resolved]
  - Drug interaction [Unknown]
